FAERS Safety Report 16663193 (Version 1)
Quarter: 2019Q3

REPORT INFORMATION
  Report Type: Report from Study
  Country: US (occurrence: US)
  Receive Date: 20190802
  Receipt Date: 20190802
  Transmission Date: 20191004
  Serious: No
  Sender: FDA-Public Use
  Company Number: US-EXELIXIS-CABO-19020370

PATIENT
  Sex: Female

DRUGS (2)
  1. CABOMETYX [Suspect]
     Active Substance: CABOZANTINIB S-MALATE
     Indication: METASTASES TO PERITONEUM
     Dosage: 40 MG, MONDAY-FRIDAY AND OFF ON WEEKENDS
     Route: 048
     Dates: start: 20180430, end: 2018
  2. CABOMETYX [Suspect]
     Active Substance: CABOZANTINIB S-MALATE
     Indication: METASTASES TO RETROPERITONEUM
     Dosage: 20 MG, UNK
     Route: 048
     Dates: start: 2018

REACTIONS (6)
  - Acne [Unknown]
  - Paranasal sinus hyposecretion [Unknown]
  - Off label use [Unknown]
  - Nasal dryness [Unknown]
  - Upper respiratory tract congestion [Unknown]
  - Foreign body sensation in eyes [Unknown]
